FAERS Safety Report 5926421-3 (Version None)
Quarter: 2008Q4

REPORT INFORMATION
  Report Type: 
  Country: None (occurrence: None)
  Receive Date: 20081022
  Receipt Date: 20081017
  Transmission Date: 20090506
  Serious: Yes (Hospitalization)
  Sender: FDA-Public Use
  Company Number: FR-ASTRAZENECA-2008CG01462

PATIENT
  Age: 58 Year
  Sex: Male

DRUGS (6)
  1. SYMBICORT [Suspect]
     Indication: ASTHMA
     Dosage: 320/9 UG PER DOSE
     Route: 055
     Dates: end: 20081002
  2. SYMBICORT [Suspect]
     Dosage: 320/9 UG PER DOSE, FOUR INHALATIONS IN A FEW MINUTES
     Route: 055
     Dates: start: 20081003, end: 20081003
  3. SYMBICORT [Suspect]
     Dosage: 320/9 UG PER DOSE
     Route: 055
     Dates: start: 20081004
  4. BRICANYL [Concomitant]
     Indication: ASTHMA
  5. FORADIL [Concomitant]
     Indication: ASTHMA
  6. SPIRIVA [Concomitant]
     Indication: ASTHMA

REACTIONS (2)
  - ACCIDENTAL OVERDOSE [None]
  - DEVICE MALFUNCTION [None]
